FAERS Safety Report 14185360 (Version 1)
Quarter: 2017Q4

REPORT INFORMATION
  Report Type: Spontaneous
  Country: US (occurrence: US)
  Receive Date: 20171111
  Receipt Date: 20171111
  Transmission Date: 20180321
  Serious: Yes (Hospitalization)
  Sender: FDA-Public Use
  Company Number: None

PATIENT
  Age: 59 Year
  Sex: Male
  Weight: 104.85 kg

DRUGS (8)
  1. SERTRALINE [Concomitant]
     Active Substance: SERTRALINE HYDROCHLORIDE
  2. ADVIL [Concomitant]
     Active Substance: IBUPROFEN
  3. IRBESARTAN. [Concomitant]
     Active Substance: IRBESARTAN
  4. HYDROCHLOROTHIAZIDE. [Suspect]
     Active Substance: HYDROCHLOROTHIAZIDE
     Dates: start: 20150814, end: 20150826
  5. LITHIUM. [Concomitant]
     Active Substance: LITHIUM
  6. CLONAZAPAM [Concomitant]
     Active Substance: CLONAZEPAM
  7. ENALAPRIL [Suspect]
     Active Substance: ENALAPRIL
  8. MG27 [Concomitant]

REACTIONS (2)
  - Fear [None]
  - Ill-defined disorder [None]
